FAERS Safety Report 20140740 (Version 1)
Quarter: 2021Q4

REPORT INFORMATION
  Report Type: Spontaneous
  Country: BR (occurrence: BR)
  Receive Date: 20211202
  Receipt Date: 20211202
  Transmission Date: 20220303
  Serious: Yes (Other)
  Sender: FDA-Public Use
  Company Number: BR-NOVARTISPH-NVSC2020BR206376

PATIENT
  Sex: Female
  Weight: 65 kg

DRUGS (1)
  1. TIMOLOL MALEATE\TRAVOPROST [Suspect]
     Active Substance: TIMOLOL MALEATE\TRAVOPROST
     Indication: Glaucoma
     Dosage: 1 DRP, QD
     Route: 065
     Dates: start: 2015

REACTIONS (5)
  - Thrombosis [Recovered/Resolved]
  - Pain in extremity [Unknown]
  - Thrombosis [Recovered/Resolved]
  - Hypercoagulation [Not Recovered/Not Resolved]
  - Peripheral vascular disorder [Not Recovered/Not Resolved]

NARRATIVE: CASE EVENT DATE: 20170101
